FAERS Safety Report 13736940 (Version 3)
Quarter: 2017Q3

REPORT INFORMATION
  Report Type: Spontaneous
  Country: None (occurrence: US)
  Receive Date: 20170710
  Receipt Date: 20170824
  Transmission Date: 20171127
  Serious: Yes (Hospitalization)
  Sender: FDA-Public Use
  Company Number: US-RARE DISEASE THERAPEUTICS, INC.-2023134

PATIENT
  Age: 6 Year
  Sex: Female
  Weight: 18.59 kg

DRUGS (15)
  1. SENNA [Concomitant]
     Active Substance: SENNA LEAF\SENNOSIDES\SENNOSIDES A AND B
  2. GOLYTELY [Concomitant]
     Active Substance: POLYETHYLENE GLYCOL 3350\POTASSIUM CHLORIDE\SODIUM BICARBONATE\SODIUM CHLORIDE\SODIUM SULFATE ANHYDROUS
  3. ZYRTEC [Concomitant]
     Active Substance: CETIRIZINE HYDROCHLORIDE
  4. DEXAMETHASONE. [Concomitant]
     Active Substance: DEXAMETHASONE
  5. LACTULOSE. [Concomitant]
     Active Substance: LACTULOSE
  6. FLONASE [Concomitant]
     Active Substance: FLUTICASONE PROPIONATE
  7. VINCRISTINE SULFATE. [Concomitant]
     Active Substance: VINCRISTINE SULFATE
  8. SINGULAIR [Concomitant]
     Active Substance: MONTELUKAST SODIUM
  9. PROAIR HFA [Concomitant]
     Active Substance: ALBUTEROL SULFATE
  10. OXYCODONE [Concomitant]
     Active Substance: OXYCODONE
  11. PURIXAN [Suspect]
     Active Substance: MERCAPTOPURINE
     Indication: ACUTE LYMPHOCYTIC LEUKAEMIA
     Dates: start: 20160730, end: 20170628
  12. METHOTREXATE. [Concomitant]
     Active Substance: METHOTREXATE
  13. ONDANSETRON [Concomitant]
     Active Substance: ONDANSETRON
  14. SULFAMETHOXAZOLE AND TRIMETHOPRIM [Concomitant]
     Active Substance: SULFAMETHOXAZOLE\TRIMETHOPRIM
  15. PURIXAN [Suspect]
     Active Substance: MERCAPTOPURINE
     Route: 048
     Dates: start: 20170706

REACTIONS (20)
  - Aspartate aminotransferase increased [None]
  - Blood albumin decreased [None]
  - Haematocrit decreased [None]
  - Protein total decreased [None]
  - Hypoglycaemia [Recovered/Resolved]
  - Hyperbilirubinaemia [Recovered/Resolved]
  - Ketosis [None]
  - Hyperbilirubinaemia [None]
  - Pain in extremity [None]
  - Viral infection [None]
  - Abdominal pain [None]
  - White blood cell count decreased [None]
  - Blood glucose increased [None]
  - Alanine aminotransferase increased [None]
  - Haemoglobin decreased [None]
  - Hepatic function abnormal [None]
  - Transaminases increased [Recovered/Resolved]
  - Vomiting [Recovered/Resolved]
  - Red blood cell count decreased [None]
  - Blood alkaline phosphatase decreased [None]

NARRATIVE: CASE EVENT DATE: 20170628
